FAERS Safety Report 16448794 (Version 1)
Quarter: 2019Q2

REPORT INFORMATION
  Report Type: Report from Study
  Country: EC (occurrence: EC)
  Receive Date: 20190619
  Receipt Date: 20190619
  Transmission Date: 20190711
  Serious: Yes (Life-Threatening, Other)
  Sender: FDA-Public Use
  Company Number: EC-ROCHE-2334198

PATIENT
  Sex: Female

DRUGS (2)
  1. BONVIVA [Suspect]
     Active Substance: IBANDRONATE SODIUM
     Indication: OSTEOPENIA
     Route: 042
  2. BONVIVA [Suspect]
     Active Substance: IBANDRONATE SODIUM
     Indication: OSTEOPOROSIS

REACTIONS (7)
  - Feeling abnormal [Unknown]
  - Ankle fracture [Unknown]
  - Tibia fracture [Unknown]
  - Bone decalcification [Unknown]
  - Asthenia [Recovered/Resolved]
  - Renal pain [Recovered/Resolved]
  - Back pain [Recovered/Resolved]
